FAERS Safety Report 24120571 (Version 1)
Quarter: 2024Q3

REPORT INFORMATION
  Report Type: Spontaneous
  Country: CN (occurrence: CN)
  Receive Date: 20240722
  Receipt Date: 20240722
  Transmission Date: 20241017
  Serious: Yes (Hospitalization, Other)
  Sender: NOVARTIS
  Company Number: CN-002147023-NVSC2024CN148826

PATIENT
  Age: 86 Year
  Sex: Female
  Weight: 60 kg

DRUGS (2)
  1. ENTRESTO [Suspect]
     Active Substance: SACUBITRIL\VALSARTAN
     Indication: Hypertension
     Dosage: 25 MG, BID
     Route: 048
     Dates: start: 20240619, end: 20240710
  2. CELEBREX [Suspect]
     Active Substance: CELECOXIB
     Indication: Arthralgia
     Dosage: 0.2 G, QD
     Route: 048
     Dates: start: 20240624, end: 20240710

REACTIONS (9)
  - Oedema peripheral [Recovering/Resolving]
  - Cardiac failure [Unknown]
  - Deep vein thrombosis [Unknown]
  - Hyperhomocysteinaemia [Unknown]
  - Arterial thrombosis [Unknown]
  - Intervertebral disc protrusion [Unknown]
  - Thyroid mass [Unknown]
  - Prescribed underdose [Unknown]
  - Wrong technique in product usage process [Unknown]

NARRATIVE: CASE EVENT DATE: 20240703
